FAERS Safety Report 5527157-3 (Version None)
Quarter: 2007Q4

REPORT INFORMATION
  Report Type: 
  Country: None (occurrence: None)
  Receive Date: 20071121
  Receipt Date: 20071112
  Transmission Date: 20080405
  Serious: Yes (Other)
  Sender: FDA-Public Use
  Company Number: 2007US002805

PATIENT
  Age: 4 Year
  Sex: Female

DRUGS (1)
  1. PROGRAF [Suspect]
     Indication: LIVER TRANSPLANT

REACTIONS (5)
  - ABDOMINAL PAIN [None]
  - EPSTEIN-BARR VIRUS TEST POSITIVE [None]
  - HAEMOLYTIC ANAEMIA [None]
  - HEADACHE [None]
  - VOMITING [None]
